FAERS Safety Report 8531259 (Version 2)
Quarter: 2012Q4

REPORT INFORMATION
  Report Type: 
  Country: US (occurrence: US)
  Receive Date: 20120426
  Receipt Date: 20121028
  Transmission Date: 20130627
  Serious: Yes (Other)
  Sender: FDA-Public Use
  Company Number: US-US-EMD SERONO, INC.-7127384

PATIENT
  Sex: Female

DRUGS (5)
  1. REBIF [Suspect]
     Indication: MULTIPLE SCLEROSIS
     Route: 058
     Dates: start: 20090123, end: 201110
  2. REBIF [Suspect]
     Route: 058
     Dates: start: 201112, end: 201209
  3. BLOOD PRESSURE MEDICATION [Concomitant]
     Indication: HYPERTENSION
  4. KLONOPIN [Concomitant]
     Indication: TREMOR
  5. LEXAPRO [Concomitant]
     Indication: DEPRESSION

REACTIONS (8)
  - Blood triglycerides increased [Not Recovered/Not Resolved]
  - Alopecia [Not Recovered/Not Resolved]
  - Weight decreased [Not Recovered/Not Resolved]
  - Haemoglobin decreased [Not Recovered/Not Resolved]
  - Dyspnoea [Unknown]
  - Constipation [Unknown]
  - Abdominal pain upper [Unknown]
  - Pain in extremity [Unknown]
